FAERS Safety Report 20669794 (Version 2)
Quarter: 2022Q2

REPORT INFORMATION
  Report Type: Spontaneous
  Country: US (occurrence: US)
  Receive Date: 20220404
  Receipt Date: 20220418
  Transmission Date: 20220721
  Serious: Yes (Hospitalization, Other)
  Sender: FDA-Public Use
  Company Number: US-SAOL THERAPEUTICS-2022SAO00077

PATIENT
  Age: 29 Year
  Sex: Male

DRUGS (5)
  1. LIORESAL [Suspect]
     Active Substance: BACLOFEN
     Indication: Muscle spasticity
     Dosage: 246 ?G, \DAY
     Route: 037
     Dates: end: 20220309
  2. LIORESAL [Suspect]
     Active Substance: BACLOFEN
     Dosage: 100 ?G, \DAY
     Route: 037
     Dates: start: 20220309, end: 20220319
  3. LIORESAL [Suspect]
     Active Substance: BACLOFEN
     Dosage: 110 ?G, \DAY
     Route: 037
  4. LIORESAL [Suspect]
     Active Substance: BACLOFEN
     Indication: Muscle spasticity
     Dosage: 98 ?G, \DAY
     Route: 037
     Dates: start: 20220319, end: 202203
  5. LIORESAL [Suspect]
     Active Substance: BACLOFEN
     Dosage: 96 ?G, \DAY
     Route: 037
     Dates: start: 202203

REACTIONS (7)
  - Wound drainage [Unknown]
  - Drug withdrawal syndrome [Unknown]
  - Seizure [Unknown]
  - Implant site swelling [Unknown]
  - Implant site scar [Unknown]
  - Complication associated with device [Recovered/Resolved]
  - Device physical property issue [Recovered/Resolved]

NARRATIVE: CASE EVENT DATE: 20220301
